FAERS Safety Report 4928981-8 (Version None)
Quarter: 2006Q1

REPORT INFORMATION
  Report Type: 
  Country: None (occurrence: None)
  Receive Date: 20060301
  Receipt Date: 20060224
  Transmission Date: 20060701
  Serious: Yes (Life-Threatening)
  Sender: FDA-Public Use
  Company Number: 6017

PATIENT
  Age: 70 Year
  Sex: Male

DRUGS (1)
  1. TOPOTECAN [Suspect]
     Dosage: 1.1MG PER DAY
     Route: 042
     Dates: start: 20060130, end: 20060203

REACTIONS (4)
  - INTERSTITIAL LUNG DISEASE [None]
  - PNEUMOCYSTIS JIROVECI PNEUMONIA [None]
  - PNEUMONIA [None]
  - PYREXIA [None]
